FAERS Safety Report 6360967-1 (Version None)
Quarter: 2009Q3

REPORT INFORMATION
  Report Type: 
  Country: None (occurrence: None)
  Receive Date: 20090918
  Receipt Date: 20090915
  Transmission Date: 20100115
  Serious: Yes (Other)
  Sender: FDA-Public Use
  Company Number: CH-BRISTOL-MYERS SQUIBB COMPANY-14777742

PATIENT
  Age: 34 Year
  Sex: Female

DRUGS (3)
  1. ORENCIA [Suspect]
     Indication: RHEUMATOID ARTHRITIS
     Dosage: INTERRUPTED ON 10AUG09.
     Route: 042
     Dates: start: 20090201
  2. DAFALGAN [Concomitant]
     Route: 048
     Dates: start: 20080501
  3. DICLOFENAC SODIUM [Concomitant]
     Route: 048

REACTIONS (1)
  - PARAESTHESIA [None]
